FAERS Safety Report 5098544-5 (Version None)
Quarter: 2006Q3

REPORT INFORMATION
  Report Type: 
  Country: None (occurrence: None)
  Receive Date: 20060906
  Receipt Date: 20060227
  Transmission Date: 20061208
  Serious: No
  Sender: FDA-Public Use
  Company Number: US-GLAXOSMITHKLINE-A0595344A

PATIENT
  Age: 42 Year
  Sex: Female

DRUGS (5)
  1. REQUIP [Suspect]
     Indication: RESTLESS LEGS SYNDROME
     Dosage: .5MG PER DAY
     Route: 048
     Dates: start: 20051201, end: 20051201
  2. PAXIL [Concomitant]
  3. ADDERALL 10 [Concomitant]
  4. INDERAL [Concomitant]
  5. AMBIEN [Concomitant]

REACTIONS (3)
  - DYSKINESIA [None]
  - NERVOUS SYSTEM DISORDER [None]
  - TENSION [None]
